FAERS Safety Report 18147117 (Version 3)
Quarter: 2020Q3

REPORT INFORMATION
  Report Type: Report from Study
  Country: NI (occurrence: NI)
  Receive Date: 20200814
  Receipt Date: 20200820
  Transmission Date: 20201103
  Serious: Yes (Hospitalization, Other)
  Sender: FDA-Public Use
  Company Number: NI-EMD SERONO-9180439

PATIENT
  Age: 48 Year
  Sex: Female

DRUGS (1)
  1. REBIF [Suspect]
     Active Substance: INTERFERON BETA-1A
     Indication: MULTIPLE SCLEROSIS
     Route: 058
     Dates: start: 20130312, end: 20200726

REACTIONS (11)
  - Alopecia [Unknown]
  - Product availability issue [Unknown]
  - Hypersensitivity [Unknown]
  - Urinary incontinence [Not Recovered/Not Resolved]
  - COVID-19 [Unknown]
  - Memory impairment [Unknown]
  - Urinary tract infection [Recovered/Resolved]
  - Arthralgia [Unknown]
  - Pneumonia [Recovered/Resolved]
  - Systemic lupus erythematosus [Unknown]
  - Dyschezia [Recovered/Resolved]

NARRATIVE: CASE EVENT DATE: 201310
